FAERS Safety Report 11403620 (Version 1)
Quarter: 2015Q3

REPORT INFORMATION
  Report Type: Spontaneous
  Country: US (occurrence: None)
  Receive Date: 20150807
  Receipt Date: 20150807
  Transmission Date: 20151125
  Serious: No
  Sender: FDA-Public Use
  Company Number: 2015FE01327

PATIENT
  Age: 66 Year
  Sex: Male
  Weight: 80.7 kg

DRUGS (4)
  1. DULERA (FORMOTEROL FUMARATE, MOMETASONE FUROATE) [Concomitant]
  2. QUINAPRIL [Concomitant]
     Active Substance: QUINAPRIL\QUINAPRIL HYDROCHLORIDE
  3. SINGULAIR MINI (MONTELUKAST SODIUM) [Concomitant]
  4. PREPOPIK [Suspect]
     Active Substance: ANHYDROUS CITRIC ACID\MAGNESIUM OXIDE\SODIUM PICOSULFATE
     Indication: BOWEL PREPARATION
     Route: 048
     Dates: start: 20150416, end: 20150417

REACTIONS (3)
  - Diarrhoea [None]
  - Flatulence [None]
  - Muscle spasms [None]
